FAERS Safety Report 10152556 (Version 1)
Quarter: 2014Q2

REPORT INFORMATION
  Report Type: Spontaneous
  Country: US (occurrence: US)
  Receive Date: 20140505
  Receipt Date: 20140505
  Transmission Date: 20141212
  Serious: Yes (Other)
  Sender: FDA-Public Use
  Company Number: US-ASTRAZENECA-2013SE74098

PATIENT
  Age: 19 Month
  Sex: Male

DRUGS (4)
  1. OMEPRAZOLE [Suspect]
     Indication: EOSINOPHILIC OESOPHAGITIS
     Route: 048
  2. OMEPRAZOLE [Suspect]
     Indication: GASTROOESOPHAGEAL REFLUX DISEASE
     Route: 048
  3. LANSOPRAZOLE [Suspect]
     Indication: EOSINOPHILIC OESOPHAGITIS
     Route: 048
  4. LANSOPRAZOLE [Suspect]
     Indication: GASTROOESOPHAGEAL REFLUX DISEASE
     Route: 048

REACTIONS (1)
  - Anaphylactic reaction [Recovering/Resolving]
